FAERS Safety Report 8196660-2 (Version None)
Quarter: 2012Q1

REPORT INFORMATION
  Report Type: 
  Country: None (occurrence: None)
  Receive Date: 20120229
  Receipt Date: 20101117
  Transmission Date: 20120608
  Serious: Yes (Hospitalization)
  Sender: FDA-Public Use
  Company Number: 010565

PATIENT
  Age: 80 Year
  Sex: Female

DRUGS (11)
  1. AVAILNEX [Concomitant]
  2. SYNTHROID [Concomitant]
  3. SAMSCA [Suspect]
     Indication: HYPONATRAEMIA
     Dosage: 15 MG, SINGLE, ORAL
     Route: 048
     Dates: start: 20100126, end: 20100126
  4. ZITHROMAX [Concomitant]
  5. GUAIFENESIN [Concomitant]
  6. LEXAPRO [Concomitant]
  7. MULTIVITAMINS (ASCORBIC ACID, ERGOCALCIFEROL,  FOLIC ACID, NICOTINAMID [Concomitant]
  8. POTASSIUM CHLORIDE [Concomitant]
  9. NOIRVASC DEN (AMLODIPINE BESILATE) [Concomitant]
  10. ASPIRIN [Concomitant]
  11. PROTONIX [Concomitant]

REACTIONS (1)
  - HYPONATRAEMIA [None]
